FAERS Safety Report 10026319 (Version 1)
Quarter: 2014Q1

REPORT INFORMATION
  Report Type: Spontaneous
  Country: TR (occurrence: US)
  Receive Date: 20140321
  Receipt Date: 20140321
  Transmission Date: 20141002
  Serious: No
  Sender: FDA-Public Use
  Company Number: TR-009507513-1403USA008816

PATIENT
  Sex: Male

DRUGS (1)
  1. PROPECIA [Suspect]
     Indication: ALOPECIA
     Dosage: 1 MG, QD
     Route: 048
     Dates: start: 201310, end: 201402

REACTIONS (8)
  - Hypertrichosis [Unknown]
  - Alopecia [Unknown]
  - Madarosis [Unknown]
  - Testicular pain [Unknown]
  - Libido decreased [Recovered/Resolved]
  - Dihydrotestosterone decreased [Unknown]
  - Amnesia [Unknown]
  - Blood immunoglobulin E abnormal [Unknown]
